FAERS Safety Report 13193049 (Version 1)
Quarter: 2017Q1

REPORT INFORMATION
  Report Type: Spontaneous
  Country: US (occurrence: US)
  Receive Date: 20170207
  Receipt Date: 20170207
  Transmission Date: 20170428
  Serious: No
  Sender: FDA-Public Use
  Company Number: US-LUNDBECK-DKLU2020576

PATIENT
  Age: 72 Year
  Sex: Male

DRUGS (2)
  1. NORTHERA [Suspect]
     Active Substance: DROXIDOPA
     Dosage: SCHEDULE B; AND TITRATING
     Route: 065
     Dates: start: 20161003
  2. NORTHERA [Suspect]
     Active Substance: DROXIDOPA
     Indication: PRODUCT USED FOR UNKNOWN INDICATION
     Dosage: SCHEDULE B; AND TITRATING
     Route: 065
     Dates: start: 20161002

REACTIONS (5)
  - Feeling abnormal [Unknown]
  - Blood glucose decreased [Unknown]
  - Blood glucose increased [Unknown]
  - Hyperhidrosis [Unknown]
  - Fall [Unknown]

NARRATIVE: CASE EVENT DATE: 20161003
